FAERS Safety Report 10697292 (Version 1)
Quarter: 2015Q1

REPORT INFORMATION
  Report Type: Spontaneous
  Country: US (occurrence: None)
  Receive Date: 20150106
  Receipt Date: 20150106
  Transmission Date: 20150721
  Serious: Yes (Other)
  Sender: FDA-Public Use
  Company Number: NSR_01743_2014

PATIENT
  Age: 61 Year
  Sex: Female
  Weight: 59.88 kg

DRUGS (1)
  1. PROPRANOLOL [Suspect]
     Active Substance: PROPRANOLOL\PROPRANOLOL HYDROCHLORIDE
     Indication: HYPERTENSION
     Route: 048
     Dates: start: 201408

REACTIONS (4)
  - Blood pressure increased [None]
  - Emotional disorder [None]
  - Drug ineffective [None]
  - Drug administration error [None]

NARRATIVE: CASE EVENT DATE: 201408
